FAERS Safety Report 10157021 (Version 1)
Quarter: 2014Q2

REPORT INFORMATION
  Report Type: Spontaneous
  Country: US (occurrence: None)
  Receive Date: 20140506
  Receipt Date: 20140506
  Transmission Date: 20141212
  Serious: Yes (Disabling)
  Sender: FDA-Public Use
  Company Number: None

PATIENT
  Age: 82 Year
  Sex: Female
  Weight: 58.97 kg

DRUGS (18)
  1. VALSARTAN HCTZ [Suspect]
     Indication: BLOOD PRESSURE
     Dosage: 1 TAB BY MOUTH HS.
     Dates: end: 20140304
  2. KLOB-CON [Concomitant]
  3. LEVOTHYROXINE SODIUM [Concomitant]
  4. BYOSTOLIC [Concomitant]
  5. BACLOFEN [Concomitant]
  6. ZONEGRAN [Concomitant]
  7. DOXYCYCLINE HYCLATE [Concomitant]
  8. FUROSEMIDE [Concomitant]
  9. POTASSIUM CHLORIDE [Concomitant]
  10. B-12 [Concomitant]
  11. ZINC [Concomitant]
  12. KAIL OIL [Concomitant]
  13. ALGAGAL [Concomitant]
  14. MULTIVITAMIN [Concomitant]
  15. VIT.C [Concomitant]
  16. B COMPLEX [Concomitant]
  17. ASPIRIN [Concomitant]
  18. POCA MABU [Concomitant]

REACTIONS (18)
  - Insomnia [None]
  - Abdominal pain [None]
  - Palpitations [None]
  - Dry mouth [None]
  - Dry eye [None]
  - Hallucination [None]
  - Heart rate irregular [None]
  - Mood swings [None]
  - Urinary incontinence [None]
  - Pain in extremity [None]
  - Pain in extremity [None]
  - Limb discomfort [None]
  - Rash [None]
  - Dizziness [None]
  - Depression [None]
  - Dyspnoea [None]
  - Dysphonia [None]
  - Aphonia [None]
